FAERS Safety Report 7195969 (Version 5)
Quarter: 2012Q4

REPORT INFORMATION
  Report Type: Report from Study
  Country: BR (occurrence: BR)
  Receive Date: 20110513
  Receipt Date: 20121108
  Transmission Date: 20130627
  Serious: Yes (Hospitalization, Other)
  Sender: FDA-Public Use
  Company Number: BR-ABBOTT-09P-020-0610242-00

PATIENT
  Age: 48 Year
  Sex: Female
  Weight: 57 kg

DRUGS (5)
  1. HUMIRA 40 MG/ 0.8 ML PRE-FILLED SYRINGE [Suspect]
     Indication: CROHN^S DISEASE
     Dosage: induction dose
     Route: 058
     Dates: start: 20090415
  2. HUMIRA 40 MG/ 0.8 ML PRE-FILLED SYRINGE [Suspect]
     Dosage: 80 milligram induction dose
     Route: 058
  3. HUMIRA 40 MG/ 0.8 ML PRE-FILLED SYRINGE [Suspect]
     Route: 058
     Dates: end: 20110325
  4. HUMIRA 40 MG/ 0.8 ML PRE-FILLED SYRINGE [Suspect]
     Route: 058
  5. MESALAZINE [Concomitant]
     Indication: CROHN^S DISEASE
     Route: 048
     Dates: start: 20070905

REACTIONS (4)
  - Gastrointestinal oedema [Recovered/Resolved]
  - Flatulence [Recovered/Resolved]
  - Small intestinal obstruction [Recovered/Resolved]
  - Small intestinal resection [Recovered/Resolved]
